FAERS Safety Report 9201528 (Version 1)
Quarter: 2013Q2

REPORT INFORMATION
  Report Type: Spontaneous
  Country: SE (occurrence: SE)
  Receive Date: 20130401
  Receipt Date: 20130401
  Transmission Date: 20140414
  Serious: Yes (Hospitalization)
  Sender: FDA-Public Use
  Company Number: SE-PFIZER INC-2013099021

PATIENT
  Age: 72 Year
  Sex: Female

DRUGS (4)
  1. CELEBRA [Suspect]
  2. SIMVASTATIN [Concomitant]
  3. TROMBYL [Concomitant]
  4. PERSANTIN - SLOW RELEASE [Concomitant]

REACTIONS (4)
  - Oesophageal ulcer [Unknown]
  - Dizziness [Unknown]
  - Pallor [Unknown]
  - Cold sweat [Unknown]
